FAERS Safety Report 17910022 (Version 1)
Quarter: 2020Q2

REPORT INFORMATION
  Report Type: Spontaneous
  Country: PT (occurrence: PT)
  Receive Date: 20200618
  Receipt Date: 20200618
  Transmission Date: 20200714
  Serious: Yes (Hospitalization, Other)
  Sender: FDA-Public Use
  Company Number: PT-TEVA-2020-PT-1505234

PATIENT
  Age: 15 Year
  Sex: Male

DRUGS (20)
  1. ETHYL LOFLAZEPATE [Suspect]
     Active Substance: ETHYL LOFLAZEPATE
     Indication: TOURETTE^S DISORDER
     Route: 065
  2. KETAMINE [Concomitant]
     Active Substance: KETAMINE
     Indication: SEDATIVE THERAPY
     Route: 065
  3. CLONIDINE. [Suspect]
     Active Substance: CLONIDINE
     Indication: TOURETTE^S DISORDER
     Dosage: 600 MICROGRAM DAILY;
     Route: 065
  4. LAMOTRIGINE. [Suspect]
     Active Substance: LAMOTRIGINE
     Indication: TOURETTE^S DISORDER
     Dosage: 75 MILLIGRAM DAILY;
     Route: 065
  5. DIAZEPAM. [Suspect]
     Active Substance: DIAZEPAM
     Indication: SEDATIVE THERAPY
     Dosage: 10 MILLIGRAM DAILY;
     Route: 065
  6. SERTRALINE [Suspect]
     Active Substance: SERTRALINE HYDROCHLORIDE
     Indication: TOURETTE^S DISORDER
     Dosage: 50 MILLIGRAM DAILY;
     Route: 065
  7. FLUVOXAMINE [Suspect]
     Active Substance: FLUVOXAMINE
     Indication: TOURETTE^S DISORDER
     Dosage: 50 MILLIGRAM DAILY;
     Route: 065
  8. CLONAZEPAM. [Suspect]
     Active Substance: CLONAZEPAM
     Indication: TOURETTE^S DISORDER
     Dosage: 1.5 MILLIGRAM DAILY; THREE TIMES A DAY
     Route: 065
  9. VALPROIC ACID. [Concomitant]
     Active Substance: VALPROIC ACID
     Indication: TOURETTE^S DISORDER
     Dosage: 1000 MILLIGRAM DAILY;
     Route: 065
  10. OLANZAPINE. [Suspect]
     Active Substance: OLANZAPINE
     Indication: TOURETTE^S DISORDER
     Route: 065
  11. CLONIDINE. [Suspect]
     Active Substance: CLONIDINE
     Indication: TOURETTE^S DISORDER
     Dosage: 337.5 MICROGRAM DAILY; THREE TIMES A DAY
     Route: 065
  12. MIDAZOLAM. [Suspect]
     Active Substance: MIDAZOLAM
     Indication: SEDATIVE THERAPY
     Dosage: BOLUSES
     Route: 065
  13. PROPOFOL. [Concomitant]
     Active Substance: PROPOFOL
     Indication: SEDATIVE THERAPY
     Route: 065
  14. MELATONIN [Concomitant]
     Active Substance: MELATONIN
     Indication: TOURETTE^S DISORDER
     Route: 065
  15. TETRABENAZINE. [Suspect]
     Active Substance: TETRABENAZINE
     Indication: TOURETTE^S DISORDER
     Dosage: 37.5 + 25 + 37.5 MG
     Route: 065
  16. TIAPRIDE [Suspect]
     Active Substance: TIAPRIDE
     Indication: TOURETTE^S DISORDER
     Dosage: 150 MILLIGRAM DAILY; THREE TIMES A DAY
     Route: 065
  17. CLOMIPRAMINE [Concomitant]
     Active Substance: CLOMIPRAMINE
     Indication: TOURETTE^S DISORDER
     Route: 065
  18. ARIPIPRAZOLE. [Suspect]
     Active Substance: ARIPIPRAZOLE
     Indication: TOURETTE^S DISORDER
     Dosage: 1 MILLIGRAM DAILY;
     Route: 065
  19. PIMOZIDE. [Suspect]
     Active Substance: PIMOZIDE
     Indication: TOURETTE^S DISORDER
     Dosage: 6 MILLIGRAM DAILY;
     Route: 065
  20. LORAZEPAM. [Suspect]
     Active Substance: LORAZEPAM
     Indication: SEDATIVE THERAPY
     Dosage: 6 MILLIGRAM DAILY; THREE TIMES A DAY
     Route: 065

REACTIONS (5)
  - Neuroleptic malignant syndrome [Unknown]
  - Catatonia [Recovering/Resolving]
  - Parkinsonism [Recovering/Resolving]
  - Weight increased [Unknown]
  - Drug ineffective [Unknown]
